FAERS Safety Report 7250316-9 (Version None)
Quarter: 2011Q1

REPORT INFORMATION
  Report Type: 
  Country: None (occurrence: None)
  Receive Date: 20110128
  Receipt Date: 20110121
  Transmission Date: 20110831
  Serious: Yes (Hospitalization, Other)
  Sender: FDA-Public Use
  Company Number: US-SANOFI-AVENTIS-2011SA004787

PATIENT
  Age: 29 Year
  Sex: Male

DRUGS (4)
  1. SOLOSTAR [Suspect]
     Dates: start: 20091201
  2. HUMALOG [Concomitant]
     Dosage: 75/25 50 UNITS IN AM DOSE:50 UNIT(S)
  3. LANTUS [Suspect]
     Dosage: DOSE:20 UNIT(S)
     Route: 058
     Dates: start: 20091201
  4. HUMALIN [Concomitant]
     Dosage: 10-12 UNITS TID WITH MEALS

REACTIONS (4)
  - HYPERGLYCAEMIA [None]
  - DIABETES MELLITUS INADEQUATE CONTROL [None]
  - HOSPITALISATION [None]
  - HYPOGLYCAEMIC UNCONSCIOUSNESS [None]
